FAERS Safety Report 5743226-7 (Version None)
Quarter: 2008Q2

REPORT INFORMATION
  Report Type: 
  Country: None (occurrence: None)
  Receive Date: 20080519
  Receipt Date: 20080422
  Transmission Date: 20081010
  Serious: No
  Sender: FDA-Public Use
  Company Number: US-BOEHRINGER INGELHEIM GMBH, GERMANY-2008-BP-06352BP

PATIENT
  Age: 38 Year
  Sex: Female

DRUGS (3)
  1. MOBIC [Suspect]
     Indication: OSTEOARTHRITIS
     Route: 048
     Dates: start: 20071201
  2. LANTUS [Concomitant]
     Indication: DIABETES MELLITUS
  3. AVANDIA [Concomitant]
     Indication: DIABETES MELLITUS

REACTIONS (1)
  - ARTHRALGIA [None]
